FAERS Safety Report 22007383 (Version 3)
Quarter: 2023Q2

REPORT INFORMATION
  Report Type: Report from Study
  Country: US (occurrence: US)
  Receive Date: 20230218
  Receipt Date: 20230506
  Transmission Date: 20230722
  Serious: No
  Sender: FDA-Public Use
  Company Number: US-002147023-NVSC2023US031588

PATIENT
  Sex: Female

DRUGS (2)
  1. COSENTYX [Suspect]
     Active Substance: SECUKINUMAB
     Indication: Psoriasis
     Dosage: 300 MG, UNKNOWN
     Route: 058
  2. COSENTYX [Suspect]
     Active Substance: SECUKINUMAB
     Indication: Psoriatic arthropathy
     Dosage: UNK (RESUMED IN DEC/JAN WITH 2 INJ ONE WEEK AND THEN 1 INJ THE WEEK AFTER BUT HAS NOT HAD DRUG SINCE
     Route: 058

REACTIONS (6)
  - Alopecia [Unknown]
  - Arthralgia [Unknown]
  - Maternal exposure during breast feeding [Unknown]
  - Upper respiratory tract infection [Unknown]
  - Headache [Recovering/Resolving]
  - Therapeutic product effect incomplete [Unknown]
